FAERS Safety Report 24606515 (Version 2)
Quarter: 2025Q1

REPORT INFORMATION
  Report Type: Report from Study
  Country: US (occurrence: US)
  Receive Date: 20241112
  Receipt Date: 20250211
  Transmission Date: 20250408
  Serious: No
  Sender: ROCHE
  Company Number: US-ROCHE-10000121255

PATIENT
  Age: 58 Year
  Sex: Female

DRUGS (12)
  1. OCREVUS [Suspect]
     Active Substance: OCRELIZUMAB
     Indication: Relapsing multiple sclerosis
     Dosage: MORE DOSAGE INFORMATION IS 300 MG SINGLE-USE VIAL
     Route: 042
  2. ADVIL [Concomitant]
     Active Substance: IBUPROFEN
  3. BUREX [Concomitant]
  4. MACRODANTIN [Concomitant]
     Active Substance: NITROFURANTOIN
  5. SYNTHROID [Concomitant]
     Active Substance: LEVOTHYROXINE SODIUM
  6. TYLENOL [Concomitant]
     Active Substance: ACETAMINOPHEN
  7. VITAMIN B12 [Concomitant]
     Active Substance: CYANOCOBALAMIN
  8. BACLOFEN [Concomitant]
     Active Substance: BACLOFEN
  9. LIOTHYRONINE [Concomitant]
     Active Substance: LIOTHYRONINE
  10. MAGNESIUM GLYCINATE [Concomitant]
     Active Substance: MAGNESIUM GLYCINATE
  11. NAPROXEN [Concomitant]
     Active Substance: NAPROXEN
  12. EZETIMIBE [Concomitant]
     Active Substance: EZETIMIBE

REACTIONS (19)
  - Paraesthesia [Unknown]
  - Hypoaesthesia [Unknown]
  - Polyneuropathy [Unknown]
  - Ill-defined disorder [Unknown]
  - Oedema peripheral [Unknown]
  - Glucose tolerance impaired [Unknown]
  - Peripheral venous disease [Unknown]
  - COVID-19 [Unknown]
  - Neck pain [Unknown]
  - Hypertonia [Unknown]
  - Restless legs syndrome [Unknown]
  - Multiple sclerosis [Unknown]
  - Neurogenic bladder [Unknown]
  - Patella fracture [Unknown]
  - Hypothyroidism [Unknown]
  - Hyperlipidaemia [Unknown]
  - Dysaesthesia [Unknown]
  - Facet joint syndrome [Unknown]
  - COVID-19 [Unknown]
